FAERS Safety Report 4884990-9 (Version None)
Quarter: 2006Q1

REPORT INFORMATION
  Report Type: 
  Country: None (occurrence: None)
  Receive Date: 20060117
  Receipt Date: 20060106
  Transmission Date: 20060701
  Serious: Yes (Hospitalization, Other)
  Sender: FDA-Public Use
  Company Number: 2005-11-1060

PATIENT
  Age: 50 Year
  Sex: Male
  Weight: 99.7913 kg

DRUGS (17)
  1. PEG-INTRON [Suspect]
     Indication: HEPATITIS C
     Dosage: 150 MCG QWK; SUBCUTANEOUS
     Route: 058
     Dates: start: 20050926
  2. REBETOL [Suspect]
     Indication: HEPATITIS C
     Dosage: 1200MG QD; ORAL; 600 MG QD; ORAL
     Route: 048
     Dates: start: 20050926, end: 20051110
  3. REBETOL [Suspect]
     Indication: HEPATITIS C
     Dosage: 1200MG QD; ORAL; 600 MG QD; ORAL
     Route: 048
     Dates: start: 20051128
  4. ACTOS (PIOGLITAZONE HCL) TABLETS [Concomitant]
  5. AMITRIPTYLINE HCL [Concomitant]
  6. ASPIRIN [Concomitant]
  7. ATENOLOL [Concomitant]
  8. GEMFIBROZIL [Concomitant]
  9. METFORMIN HCL [Concomitant]
  10. MILK THISTLE FRUIT CAPSULES [Concomitant]
  11. OXYCONTIN (OXYCODONE HCL) TABLETS [Concomitant]
  12. QUINAPRIL HYDROCHLORIDE TABLETS [Concomitant]
  13. IBUPROFEN [Concomitant]
  14. HYDROCHLOROTHIAZIDE [Concomitant]
  15. LACTULOSE [Concomitant]
  16. REGLAN [Concomitant]
  17. DECADRON [Concomitant]

REACTIONS (31)
  - AMNESIA [None]
  - ASPARTATE AMINOTRANSFERASE INCREASED [None]
  - BACK PAIN [None]
  - BLOOD GLUCOSE DECREASED [None]
  - BLOOD PRESSURE INCREASED [None]
  - DEHYDRATION [None]
  - DEPRESSED LEVEL OF CONSCIOUSNESS [None]
  - DIARRHOEA [None]
  - DRY SKIN [None]
  - ENCEPHALITIS [None]
  - FATIGUE [None]
  - HAEMATOCRIT DECREASED [None]
  - HAEMOGLOBIN DECREASED [None]
  - HEADACHE [None]
  - HEART RATE INCREASED [None]
  - HEPATIC ENCEPHALOPATHY [None]
  - HYPERSENSITIVITY [None]
  - MYALGIA [None]
  - NAUSEA [None]
  - NEUTROPHIL COUNT DECREASED [None]
  - ORAL INTAKE REDUCED [None]
  - PAIN [None]
  - PANCREATIC DISORDER [None]
  - PHOTOPHOBIA [None]
  - PLATELET COUNT DECREASED [None]
  - SOMNOLENCE [None]
  - THIRST [None]
  - URINE KETONE BODY PRESENT [None]
  - VOMITING [None]
  - WEIGHT DECREASED [None]
  - WHITE BLOOD CELL COUNT DECREASED [None]
